FAERS Safety Report 9704650 (Version 1)
Quarter: 2013Q4

REPORT INFORMATION
  Report Type: Spontaneous
  Country: US (occurrence: None)
  Receive Date: 20131121
  Receipt Date: 20131121
  Transmission Date: 20140711
  Serious: No
  Sender: FDA-Public Use
  Company Number: None

PATIENT
  Age: 51 None
  Sex: Female

DRUGS (9)
  1. NEURONTIN [Suspect]
     Indication: FIBROMYALGIA
     Dates: start: 201104, end: 201202
  2. NEURONTIN [Suspect]
     Indication: SJOGREN^S SYNDROME
     Dates: start: 201104, end: 201202
  3. LEXAPRO [Concomitant]
  4. WELLBUTRIN [Concomitant]
  5. PRILOSEC [Concomitant]
  6. AMBIENT [Concomitant]
  7. FLOMAX [Concomitant]
  8. SEROQUEL [Concomitant]
  9. VAGI FEM [Concomitant]

REACTIONS (2)
  - Drug-induced liver injury [None]
  - Hepatitis [None]
